FAERS Safety Report 7496540-1 (Version None)
Quarter: 2011Q2

REPORT INFORMATION
  Report Type: 
  Country: None (occurrence: None)
  Receive Date: 20110523
  Receipt Date: 20110513
  Transmission Date: 20111010
  Serious: Yes (Hospitalization)
  Sender: FDA-Public Use
  Company Number: US-ASTRAZENECA-2011SE24216

PATIENT
  Age: 77 Year
  Sex: Female

DRUGS (4)
  1. TOPROL-XL [Suspect]
     Route: 048
  2. IMDUR [Concomitant]
  3. MAXZIDE [Concomitant]
  4. COZAAR [Concomitant]

REACTIONS (1)
  - STENT PLACEMENT [None]
